FAERS Safety Report 6080299-9 (Version None)
Quarter: 2009Q1

REPORT INFORMATION
  Report Type: 
  Country: None (occurrence: None)
  Receive Date: 20090217
  Receipt Date: 20090209
  Transmission Date: 20090719
  Serious: Yes (Hospitalization, Other)
  Sender: FDA-Public Use
  Company Number: US-TEVA-185296USA

PATIENT
  Age: 61 Year
  Sex: Male

DRUGS (1)
  1. NICARDIPINE HYDROCHLORIDE INJECTION, 2.5 MG/ML SOLUTION [Suspect]
     Indication: BLOOD PRESSURE MANAGEMENT
     Route: 041

REACTIONS (3)
  - HEPATIC ENZYME INCREASED [None]
  - HEPATITIS [None]
  - PYREXIA [None]
